FAERS Safety Report 15015471 (Version 1)
Quarter: 2018Q2

REPORT INFORMATION
  Report Type: Spontaneous
  Country: US (occurrence: US)
  Receive Date: 20180530
  Receipt Date: 20180530
  Transmission Date: 20180711
  Serious: Yes (Other)
  Sender: FDA-Public Use
  Company Number: None

PATIENT
  Age: 71 Year
  Sex: Female
  Weight: 97.2 kg

DRUGS (14)
  1. VITAMIN D [Concomitant]
     Active Substance: CHOLECALCIFEROL
  2. POTASSIUM [Concomitant]
     Active Substance: POTASSIUM
  3. PRAVASTATIN. [Concomitant]
     Active Substance: PRAVASTATIN
  4. VITAMIN B12 [Concomitant]
     Active Substance: CYANOCOBALAMIN
  5. VITAMIN F [Concomitant]
     Active Substance: OMEGA-3 FATTY ACIDS
  6. CALCIUM [Concomitant]
     Active Substance: CALCIUM
  7. BIOTIN [Concomitant]
     Active Substance: BIOTIN
  8. LIVER OIL [Concomitant]
  9. VITAMIN C [Concomitant]
     Active Substance: ASCORBIC ACID
  10. COCONUT OIL [Concomitant]
     Active Substance: COCONUT OIL
  11. CONTRAVE [Suspect]
     Active Substance: BUPROPION HYDROCHLORIDE\NALTREXONE HYDROCHLORIDE
     Indication: WEIGHT DECREASED
     Dosage: ?          QUANTITY:120 TABLET(S);?
     Route: 048
     Dates: start: 20170503, end: 20170505
  12. GLUCOSAMINE [Concomitant]
     Active Substance: GLUCOSAMINE
  13. MAGNESIUM [Concomitant]
     Active Substance: MAGNESIUM
  14. TURMERIC [Concomitant]
     Active Substance: HERBALS\TURMERIC

REACTIONS (4)
  - Judgement impaired [None]
  - Mental impairment [None]
  - Negativism [None]
  - Incorrect dose administered [None]

NARRATIVE: CASE EVENT DATE: 20170503
